FAERS Safety Report 12481221 (Version 1)
Quarter: 2016Q2

REPORT INFORMATION
  Report Type: Spontaneous
  Country: US (occurrence: US)
  Receive Date: 20160620
  Receipt Date: 20160620
  Transmission Date: 20160815
  Serious: Yes (Death, Other)
  Sender: FDA-Public Use
  Company Number: US-BTG INTERNATIONAL LTD-BTG00746

PATIENT

DRUGS (7)
  1. ATROPINE SULATE [Concomitant]
     Active Substance: ATROPINE SULFATE
     Indication: VENTRICULAR FIBRILLATION
     Dosage: UNK
     Route: 065
  2. DIGIFAB [Suspect]
     Active Substance: OVINE DIGOXIN IMMUNE FAB
     Dosage: 11 VIAL
     Route: 040
  3. AMIODARONE HCL [Concomitant]
     Active Substance: AMIODARONE HYDROCHLORIDE
     Indication: VENTRICULAR FIBRILLATION
     Dosage: UNK
     Route: 065
  4. DIGIFAB [Suspect]
     Active Substance: OVINE DIGOXIN IMMUNE FAB
     Indication: INTENTIONAL PRODUCT USE ISSUE
     Dosage: 12 VIALS
     Route: 040
  5. EPINEPHRINE. [Concomitant]
     Active Substance: EPINEPHRINE
     Indication: VENTRICULAR FIBRILLATION
     Dosage: UNK
     Route: 065
  6. PROCAINAMIDE HYDROCHLORIDE. [Concomitant]
     Active Substance: PROCAINAMIDE HYDROCHLORIDE
     Indication: VENTRICULAR FIBRILLATION
     Dosage: UNK
     Route: 065
  7. DIGIFAB [Suspect]
     Active Substance: OVINE DIGOXIN IMMUNE FAB
     Indication: CARDIOTOXICITY
     Dosage: 10 VIALS
     Route: 040

REACTIONS (3)
  - Intentional product use issue [Unknown]
  - Cardiac arrest [Fatal]
  - Therapeutic product ineffective for unapproved indication [Fatal]
